FAERS Safety Report 5014812-7 (Version None)
Quarter: 2006Q2

REPORT INFORMATION
  Report Type: 
  Country: None (occurrence: None)
  Receive Date: 20060419
  Receipt Date: 20050303
  Transmission Date: 20061013
  Serious: Yes (Hospitalization, Other)
  Sender: FDA-Public Use
  Company Number: 2005-00784

PATIENT
  Age: 77 Year
  Sex: Female
  Weight: 81.6 kg

DRUGS (5)
  1. FERRLECIT [Suspect]
     Indication: ANAEMIA OF CHRONIC DISEASE
     Dosage: SEE IMAGE
     Route: 042
     Dates: start: 20041118, end: 20050201
  2. FERRLECIT [Suspect]
     Indication: IRON DEFICIENCY ANAEMIA
     Dosage: SEE IMAGE
     Route: 042
     Dates: start: 20041118, end: 20050201
  3. FERRLECIT [Suspect]
     Indication: ANAEMIA OF CHRONIC DISEASE
     Dosage: SEE IMAGE
     Route: 042
     Dates: start: 20050303, end: 20050303
  4. FERRLECIT [Suspect]
     Indication: IRON DEFICIENCY ANAEMIA
     Dosage: SEE IMAGE
     Route: 042
     Dates: start: 20050303, end: 20050303
  5. EPOGEN [Concomitant]

REACTIONS (5)
  - CHEST PAIN [None]
  - DYSPNOEA [None]
  - HYPERHIDROSIS [None]
  - NAUSEA [None]
  - PALLOR [None]
